FAERS Safety Report 19932489 (Version 3)
Quarter: 2021Q4

REPORT INFORMATION
  Report Type: Other
  Country: US (occurrence: None)
  Receive Date: 20211008
  Receipt Date: 20211206
  Transmission Date: 20220303
  Serious: Yes (Hospitalization, Other)
  Sender: FDA-Public Use
  Company Number: US-ROCHE-2925550

PATIENT
  Age: 71 Year
  Sex: Male
  Weight: 70.370 kg

DRUGS (6)
  1. OCREVUS [Suspect]
     Active Substance: OCRELIZUMAB
     Indication: Multiple sclerosis
     Dosage: 02/AUG/2021 600 MG VIAL 300 MG AT DAY 1 AND DAY 15
     Route: 042
     Dates: start: 20180723
  2. AMLODIPINE [Concomitant]
     Active Substance: AMLODIPINE BESYLATE
     Route: 048
     Dates: end: 202108
  3. CARVEDILOL [Concomitant]
     Active Substance: CARVEDILOL
     Indication: Blood pressure measurement
     Route: 048
  4. ATORVASTATIN [Concomitant]
     Active Substance: ATORVASTATIN
     Route: 048
  5. SYMBICORT [Concomitant]
     Active Substance: BUDESONIDE\FORMOTEROL FUMARATE DIHYDRATE
     Indication: Chronic obstructive pulmonary disease
     Dosage: 2 INHALATIONS TWICE DAILY
     Route: 055
  6. COMBIVENT [Concomitant]
     Active Substance: ALBUTEROL SULFATE\IPRATROPIUM BROMIDE
     Dosage: 3- 4 TIMES DAILY 1 PUFF AS REQUIRED
     Route: 055

REACTIONS (7)
  - Infection [Recovered/Resolved]
  - Haemoglobin decreased [Recovered/Resolved]
  - Haemoptysis [Unknown]
  - Hypotension [Recovered/Resolved]
  - Small cell lung cancer [Recovering/Resolving]
  - Multiple sclerosis relapse [Unknown]
  - Vitamin D deficiency [Unknown]

NARRATIVE: CASE EVENT DATE: 20210629
